FAERS Safety Report 7801224-3 (Version None)
Quarter: 2011Q4

REPORT INFORMATION
  Report Type: 
  Country: None (occurrence: None)
  Receive Date: 20111007
  Receipt Date: 20111003
  Transmission Date: 20120403
  Serious: No
  Sender: FDA-Public Use
  Company Number: US-BIOGENIDEC-2011BI037904

PATIENT
  Age: 40 Year
  Sex: Female

DRUGS (2)
  1. TYSABRI [Suspect]
     Indication: MULTIPLE SCLEROSIS
     Route: 042
     Dates: start: 20110926
  2. SANCTURA [Concomitant]
     Indication: MICTURITION URGENCY
     Dates: start: 20070101

REACTIONS (4)
  - PERIPHERAL COLDNESS [None]
  - VASCULAR ACCESS COMPLICATION [None]
  - DRUG INEFFECTIVE [None]
  - INFUSION SITE PAIN [None]
